FAERS Safety Report 13829391 (Version 1)
Quarter: 2017Q3

REPORT INFORMATION
  Report Type: Spontaneous
  Country: US (occurrence: US)
  Receive Date: 20170803
  Receipt Date: 20170803
  Transmission Date: 20171127
  Serious: Yes (Life-Threatening, Hospitalization, Disabling, Other)
  Sender: FDA-Public Use
  Company Number: None

PATIENT
  Age: 67 Year
  Sex: Female
  Weight: 91.35 kg

DRUGS (8)
  1. CENTRUM SILVER [Concomitant]
     Active Substance: MINERALS\VITAMINS
  2. IRON [Concomitant]
     Active Substance: IRON
  3. PAROXATINE SOLCO [Suspect]
     Active Substance: PAROXETINE
     Indication: POST-TRAUMATIC STRESS DISORDER
     Dosage: ?          QUANTITY:1 TABLET(S);?
     Route: 048
     Dates: start: 20161028, end: 20170512
  4. CALTRATE [Concomitant]
     Active Substance: CALCIUM CARBONATE
  5. PAROXATINE SOLCO [Suspect]
     Active Substance: PAROXETINE
     Indication: ANXIETY
     Dosage: ?          QUANTITY:1 TABLET(S);?
     Route: 048
     Dates: start: 20161028, end: 20170512
  6. PAXIL [Concomitant]
     Active Substance: PAROXETINE HYDROCHLORIDE
  7. PANTOPRAZOLE [Concomitant]
     Active Substance: PANTOPRAZOLE
  8. PAROXATINE SOLCO [Suspect]
     Active Substance: PAROXETINE
     Indication: VICTIM OF CRIME
     Dosage: ?          QUANTITY:1 TABLET(S);?
     Route: 048
     Dates: start: 20161028, end: 20170512

REACTIONS (9)
  - Fibromyalgia [None]
  - Drug dispensing error [None]
  - Decreased appetite [None]
  - Product substitution issue [None]
  - Weight decreased [None]
  - Expired product administered [None]
  - Pain [None]
  - Insomnia [None]
  - Fatigue [None]

NARRATIVE: CASE EVENT DATE: 20170514
